FAERS Safety Report 8921242 (Version 1)
Quarter: 2012Q4

REPORT INFORMATION
  Report Type: 
  Country: PE (occurrence: PE)
  Receive Date: 20121123
  Receipt Date: 20121123
  Transmission Date: 20130627
  Serious: Yes (Death)
  Sender: FDA-Public Use
  Company Number: PE-SANOFI-AVENTIS-2012SA085334

PATIENT
  Age: 83 Year
  Sex: Male

DRUGS (1)
  1. LANTUS [Suspect]
     Indication: DIABETES
     Dosage: Dose:8 unit(s)
     Route: 058

REACTIONS (1)
  - Lung neoplasm malignant [Fatal]
